FAERS Safety Report 4865116-4 (Version None)
Quarter: 2005Q4

REPORT INFORMATION
  Report Type: 
  Country: None (occurrence: None)
  Receive Date: 20051221
  Receipt Date: 20051221
  Transmission Date: 20060501
  Serious: No
  Sender: FDA-Public Use
  Company Number: None

PATIENT
  Age: 39 Year
  Sex: Male
  Weight: 128 kg

DRUGS (1)
  1. DEPAKOTE [Suspect]
     Indication: MOOD ALTERED
     Dosage: 2000 MG BEDTIME PO
     Route: 048
     Dates: start: 20051118, end: 20051220

REACTIONS (2)
  - HYPONATRAEMIA [None]
  - POLYDIPSIA [None]
